FAERS Safety Report 7903880-8 (Version None)
Quarter: 2011Q4

REPORT INFORMATION
  Report Type: 
  Country: None (occurrence: None)
  Receive Date: 20111109
  Receipt Date: 20111102
  Transmission Date: 20120403
  Serious: Yes (Other)
  Sender: FDA-Public Use
  Company Number: US-JNJFOC-20111102526

PATIENT
  Age: 67 Year
  Sex: Female
  Weight: 47.63 kg

DRUGS (6)
  1. PREMARIN [Concomitant]
     Indication: HORMONE REPLACEMENT THERAPY
     Route: 065
     Dates: start: 19710101
  2. HYDROCHLOROTHIAZIDE [Concomitant]
     Indication: HYPERTENSION
     Dosage: 3-4 YEARS
     Route: 065
  3. BONIVA [Concomitant]
     Indication: OSTEOPOROSIS
     Route: 065
     Dates: start: 19960101
  4. PROTONIX [Concomitant]
     Indication: GASTRIC ULCER
     Route: 065
     Dates: start: 20111001
  5. COOL MINT LISTERINE [Suspect]
     Indication: DENTAL DISORDER PROPHYLAXIS
     Dosage: 1/2 CAPFUL
     Route: 048
  6. VITAMIN AND MINERAL SUPPLEMENT [Concomitant]
     Indication: ROUTINE HEALTH MAINTENANCE
     Dosage: YEARS AGO
     Route: 065

REACTIONS (2)
  - PRODUCT QUALITY ISSUE [None]
  - OROPHARYNGEAL BLISTERING [None]
